FAERS Safety Report 14459589 (Version 1)
Quarter: 2018Q1

REPORT INFORMATION
  Report Type: Spontaneous
  Country: IT (occurrence: IT)
  Receive Date: 20180130
  Receipt Date: 20180130
  Transmission Date: 20180509
  Serious: Yes (Life-Threatening)
  Sender: FDA-Public Use
  Company Number: IT-PFIZER INC-2018040348

PATIENT
  Age: 49 Year
  Sex: Female

DRUGS (6)
  1. ALOXI [Concomitant]
     Active Substance: PALONOSETRON HYDROCHLORIDE
     Dosage: UNK
  2. EMEND [Concomitant]
     Active Substance: APREPITANT
     Dosage: UNK
  3. TRIMETON [Concomitant]
     Active Substance: CHLORPHENIRAMINE MALEATE
     Dosage: UNK
  4. RANITIDINE. [Concomitant]
     Active Substance: RANITIDINE
     Dosage: UNK
  5. PACLITAXEL. [Suspect]
     Active Substance: PACLITAXEL
     Indication: CHEMOTHERAPY
     Dosage: 280 MG, CYCLIC
     Dates: start: 20180115, end: 201801
  6. DEXAMETHASONE PHOSPHATE [Concomitant]
     Active Substance: DEXAMETHASONE PHOSPHATE
     Dosage: UNK

REACTIONS (7)
  - Hypoxia [Recovered/Resolved]
  - Back pain [Recovered/Resolved]
  - Ventricular extrasystoles [Recovered/Resolved]
  - Hypotension [Recovered/Resolved]
  - Hypoventilation [Recovered/Resolved]
  - Abdominal pain [Recovered/Resolved]
  - Metabolic acidosis [Recovered/Resolved]

NARRATIVE: CASE EVENT DATE: 20180115
